FAERS Safety Report 22118143 (Version 1)
Quarter: 2023Q1

REPORT INFORMATION
  Report Type: Spontaneous
  Country: US (occurrence: US)
  Receive Date: 20230321
  Receipt Date: 20230321
  Transmission Date: 20230418
  Serious: No
  Sender: FDA-Public Use
  Company Number: US-BIOGEN-2017BI00385942

PATIENT
  Age: 17 Year
  Sex: Male

DRUGS (2)
  1. TYSABRI [Suspect]
     Active Substance: NATALIZUMAB
     Indication: Multiple sclerosis
     Dosage: INFUSED OVER ONE HOUR
     Route: 050
     Dates: start: 20170209, end: 20170802
  2. TYSABRI [Suspect]
     Active Substance: NATALIZUMAB
     Route: 050
     Dates: start: 20181221, end: 20190221

REACTIONS (3)
  - Product administered to patient of inappropriate age [Recovered/Resolved]
  - Cognitive disorder [Unknown]
  - Illness [Unknown]

NARRATIVE: CASE EVENT DATE: 20170209
